FAERS Safety Report 7427746-5 (Version None)
Quarter: 2011Q2

REPORT INFORMATION
  Report Type: 
  Country: None (occurrence: None)
  Receive Date: 20110421
  Receipt Date: 20110412
  Transmission Date: 20111010
  Serious: Yes (Hospitalization)
  Sender: FDA-Public Use
  Company Number: GR-ELI_LILLY_AND_COMPANY-GR201104004222

PATIENT
  Age: 36 Year
  Sex: Male
  Weight: 85 kg

DRUGS (1)
  1. LADOSE [Suspect]
     Indication: PANIC DISORDER WITH AGORAPHOBIA
     Dosage: 20 MG, QD
     Route: 048
     Dates: start: 20090301

REACTIONS (1)
  - PULMONARY TUBERCULOSIS [None]
